FAERS Safety Report 7155891-0 (Version None)
Quarter: 2010Q4

REPORT INFORMATION
  Report Type: 
  Country: None (occurrence: None)
  Receive Date: 20101214
  Receipt Date: 20101208
  Transmission Date: 20110411
  Serious: Yes (Hospitalization)
  Sender: FDA-Public Use
  Company Number: US-BRISTOL-MYERS SQUIBB COMPANY-15430986

PATIENT
  Age: 68 Year
  Sex: Male

DRUGS (1)
  1. COUMADIN [Suspect]
     Dosage: DOSAGE ADJUSTED DURING HOSPITALIZATION.

REACTIONS (4)
  - DEPRESSION [None]
  - DIZZINESS [None]
  - INTERNATIONAL NORMALISED RATIO INCREASED [None]
  - LOSS OF CONSCIOUSNESS [None]
